FAERS Safety Report 13108946 (Version 1)
Quarter: 2017Q1

REPORT INFORMATION
  Report Type: Spontaneous
  Country: US (occurrence: US)
  Receive Date: 20170112
  Receipt Date: 20170112
  Transmission Date: 20170428
  Serious: No
  Sender: FDA-Public Use
  Company Number: None

PATIENT
  Age: 50 Year
  Sex: Male
  Weight: 68.1 kg

DRUGS (3)
  1. HUMALOG [Concomitant]
     Active Substance: INSULIN LISPRO
  2. LEVEMIR [Concomitant]
     Active Substance: INSULIN DETEMIR
  3. LANSOPRAZ DR CAP 30 MG RX (LANSOPRAZOLE) NATCO PHARMA LIMITED [Suspect]
     Active Substance: LANSOPRAZOLE
     Indication: DYSPEPSIA
     Dosage: ?          QUANTITY:J BAFFLE#?{V/W 90 0/3 PA?;?
     Route: 048
     Dates: start: 2007, end: 20161224

REACTIONS (2)
  - Drug ineffective [None]
  - Product quality issue [None]

NARRATIVE: CASE EVENT DATE: 20161201
